FAERS Safety Report 7255693-0 (Version None)
Quarter: 2011Q1

REPORT INFORMATION
  Report Type: 
  Country: None (occurrence: None)
  Receive Date: 20110129
  Receipt Date: 20100823
  Transmission Date: 20110831
  Serious: No
  Sender: FDA-Public Use
  Company Number: US-ABBOTT-10P-163-0666937-00

PATIENT
  Sex: Male

DRUGS (1)
  1. HUMIRA [Suspect]

REACTIONS (3)
  - INCORRECT ROUTE OF DRUG ADMINISTRATION [None]
  - DRUG DOSE OMISSION [None]
  - DEVICE MALFUNCTION [None]
